FAERS Safety Report 20385066 (Version 1)
Quarter: 2022Q1

REPORT INFORMATION
  Report Type: Spontaneous
  Country: US (occurrence: None)
  Receive Date: 20220127
  Receipt Date: 20220127
  Transmission Date: 20220424
  Serious: Yes (Life-Threatening, Hospitalization)
  Sender: FDA-Public Use
  Company Number: None

PATIENT
  Age: 54 Year
  Sex: Male

DRUGS (2)
  1. CAPECITABINE [Suspect]
     Active Substance: CAPECITABINE
     Indication: Rectal cancer metastatic
     Dosage: OTHER QUANTITY : 2000MG-1000MG;?FREQUENCY : TWICE A DAY;?
     Route: 048
     Dates: start: 202110, end: 20220111
  2. CAPECITABINE [Suspect]
     Active Substance: CAPECITABINE
     Indication: Metastases to bone

REACTIONS (10)
  - Mucosal haemorrhage [None]
  - Drug ineffective [None]
  - Fatigue [None]
  - Dehydration [None]
  - Epistaxis [None]
  - Gastric haemorrhage [None]
  - Intestinal haemorrhage [None]
  - Lactic acidosis [None]
  - Abscess [None]
  - Prescribed underdose [None]

NARRATIVE: CASE EVENT DATE: 20220101
